FAERS Safety Report 13776993 (Version 6)
Quarter: 2019Q3

REPORT INFORMATION
  Report Type: Spontaneous
  Country: SK (occurrence: SK)
  Receive Date: 20170721
  Receipt Date: 20190920
  Transmission Date: 20191004
  Serious: Yes (Death, Hospitalization)
  Sender: FDA-Public Use
  Company Number: SK-NAPPMUNDI-GBR-2017-0046913

PATIENT
  Age: 79 Year
  Sex: Male
  Weight: 98 kg

DRUGS (22)
  1. TARGIN [Suspect]
     Active Substance: NALOXONE HYDROCHLORIDE\OXYCODONE HYDROCHLORIDE
     Indication: CANCER PAIN
     Dosage: 2 DF, DAILY [2X/DAY]
     Route: 048
     Dates: start: 20170331
  2. SOLMUCOL [Concomitant]
     Active Substance: ACETYLCYSTEINE
     Indication: CHRONIC OBSTRUCTIVE PULMONARY DISEASE
     Dosage: UNK UNK, TID
     Route: 065
     Dates: start: 20170608
  3. ISOPTIN [Concomitant]
     Active Substance: VERAPAMIL HYDROCHLORIDE
     Indication: HYPERTENSION
     Dosage: 40 MG, TID
     Route: 048
     Dates: start: 20170608
  4. CLARITROMYCINE [Concomitant]
     Active Substance: CLARITHROMYCIN
     Indication: LUNG INFECTION
     Dosage: UNK
     Dates: start: 20170523
  5. AMOKSIKLAV                         /00756801/ [Concomitant]
     Indication: LUNG INFECTION
     Dosage: UNK
     Route: 048
     Dates: start: 20170608, end: 20170619
  6. SEVREDOL [Suspect]
     Active Substance: MORPHINE
     Indication: CANCER PAIN
     Dosage: UNK, PRN
     Route: 048
     Dates: start: 20170331
  7. NOVALGIN (METAMIZOLE SODIUM) [Concomitant]
     Active Substance: METAMIZOLE SODIUM
     Indication: PAIN
     Dosage: UNK
     Dates: start: 20170331
  8. SPIRONOLACTONE. [Concomitant]
     Active Substance: SPIRONOLACTONE
     Indication: MYOCARDIAL ISCHAEMIA
     Dosage: UNK
     Dates: start: 20160222
  9. NOLPAZA [Concomitant]
     Active Substance: PANTOPRAZOLE SODIUM
     Indication: PROPHYLAXIS
     Dosage: 40 MG, DAILY
     Route: 048
     Dates: start: 20170608
  10. LEXAURIN [Concomitant]
     Active Substance: BROMAZEPAM
     Indication: DEPRESSION
     Dosage: 1.5 MG, PRN
     Route: 048
     Dates: start: 20170608
  11. ATROVENT [Concomitant]
     Active Substance: IPRATROPIUM BROMIDE
     Indication: CHRONIC OBSTRUCTIVE PULMONARY DISEASE
     Dosage: UNK
     Dates: start: 20170308
  12. FRAXIPARINE                        /01437702/ [Concomitant]
     Active Substance: NADROPARIN CALCIUM
     Indication: PROPHYLAXIS
     Dosage: 0.4 ML, BID
     Route: 058
     Dates: start: 20160222
  13. BERODUAL [Concomitant]
     Active Substance: FENOTEROL HYDROBROMIDE\IPRATROPIUM BROMIDE
     Indication: CHRONIC OBSTRUCTIVE PULMONARY DISEASE
     Dosage: 2 INHALATION AS NEEDED
     Dates: start: 20170308
  14. BISEPTOL [Concomitant]
     Active Substance: SULFAMETHOXAZOLE\TRIMETHOPRIM
     Indication: LUNG INFECTION
     Dosage: UNK
     Route: 048
     Dates: start: 20170608, end: 20170619
  15. CITALOPRAM [Concomitant]
     Active Substance: CITALOPRAM HYDROBROMIDE
     Dosage: UNK
     Dates: start: 20170331
  16. DEXAMED                            /00016002/ [Concomitant]
     Indication: METASTASES TO CENTRAL NERVOUS SYSTEM
     Dosage: UNK
     Route: 048
     Dates: start: 20170608
  17. OMEPRAZOL                          /00661201/ [Concomitant]
     Active Substance: OMEPRAZOLE
     Indication: PROPHYLAXIS
     Dosage: 20 MG, UNK
     Route: 048
     Dates: start: 20170608
  18. SOLMUCOL [Concomitant]
     Active Substance: ACETYLCYSTEINE
     Dosage: 10 ML, TID
     Route: 065
     Dates: start: 20170523
  19. CITALOPRAM [Concomitant]
     Active Substance: CITALOPRAM HYDROBROMIDE
     Indication: DEPRESSION
     Dosage: UNK
     Dates: start: 20170608
  20. LEXAURIN [Concomitant]
     Active Substance: BROMAZEPAM
     Dosage: UNK
     Dates: start: 20170331
  21. FUROSEMID                          /00032601/ [Concomitant]
     Active Substance: FUROSEMIDE
     Indication: MYOCARDIAL ISCHAEMIA
     Dosage: UNK, BID
     Dates: start: 20160222
  22. EBRANTIL                           /00631801/ [Concomitant]
     Active Substance: URAPIDIL
     Indication: HYPERTENSION
     Dosage: 30 MG, DAILY
     Route: 048
     Dates: start: 20170608

REACTIONS (2)
  - Condition aggravated [Fatal]
  - Neoplasm progression [Fatal]

NARRATIVE: CASE EVENT DATE: 20170530
